FAERS Safety Report 7064558-9 (Version None)
Quarter: 2010Q4

REPORT INFORMATION
  Report Type: 
  Country: None (occurrence: None)
  Receive Date: 20101027
  Receipt Date: 20101022
  Transmission Date: 20110411
  Serious: Yes (Death, Hospitalization)
  Sender: FDA-Public Use
  Company Number: NL-B.I. PHARMACEUTICALS,INC./RIDGEFIELD-2010-DE-05779DE

PATIENT
  Sex: Female
  Weight: 70 kg

DRUGS (10)
  1. DABIGATRAN [Suspect]
     Indication: CEREBROVASCULAR ACCIDENT PROPHYLAXIS
     Route: 048
     Dates: start: 20070523, end: 20101015
  2. DABIGATRAN [Suspect]
     Indication: ATRIAL FIBRILLATION
  3. SIMVASTATIN [Concomitant]
     Indication: CORONARY ARTERY DISEASE
     Dosage: 1 ANZ
     Route: 048
     Dates: start: 20040810, end: 20101014
  4. SELOKEEN 200 [Concomitant]
     Indication: CORONARY ARTERY DISEASE
     Dosage: 1 ANZ
     Route: 048
     Dates: start: 20070220, end: 20101014
  5. SELOKEEN 200 [Concomitant]
     Indication: HEART RATE ABNORMAL
  6. NORVASC [Concomitant]
     Indication: CORONARY ARTERY DISEASE
     Dosage: 1 ANZ
     Route: 048
     Dates: start: 20070508, end: 20101014
  7. ENALAPRIL MALEATE [Concomitant]
     Indication: CARDIAC FAILURE
     Dosage: 2 ANZ
     Route: 048
     Dates: start: 20070527, end: 20101014
  8. BUMEX [Concomitant]
     Indication: CARDIAC FAILURE
     Dosage: 1 ANZ
     Route: 048
     Dates: start: 20080403, end: 20101014
  9. SPIRONOLACTONE [Concomitant]
     Indication: CARDIAC FAILURE
     Dosage: 0.5 ANZ
     Route: 048
     Dates: start: 20100930, end: 20101014
  10. INSULIN [Concomitant]
     Route: 058
     Dates: start: 20090528, end: 20101014

REACTIONS (1)
  - ENCEPHALOPATHY [None]
